FAERS Safety Report 9300810 (Version 1)
Quarter: 2013Q2

REPORT INFORMATION
  Report Type: Spontaneous
  Country: US (occurrence: US)
  Receive Date: 20130521
  Receipt Date: 20130521
  Transmission Date: 20140414
  Serious: Yes (Other)
  Sender: FDA-Public Use
  Company Number: CHPA2013US008365

PATIENT
  Age: 68 Year
  Sex: Female

DRUGS (3)
  1. EXCEDRIN MIGRAINE [Suspect]
     Indication: MIGRAINE
     Dosage: UNK, UNK
     Route: 048
     Dates: start: 1989, end: 2012
  2. PERCOCET [Concomitant]
     Dosage: UNK, UNK
  3. SOMA [Concomitant]
     Dosage: UNK, UNK

REACTIONS (3)
  - Drug dependence [Unknown]
  - Medication overuse headache [Not Recovered/Not Resolved]
  - Migraine [Unknown]
